FAERS Safety Report 14759113 (Version 1)
Quarter: 2018Q2

REPORT INFORMATION
  Report Type: Spontaneous
  Country: CA (occurrence: CA)
  Receive Date: 20180413
  Receipt Date: 20180413
  Transmission Date: 20180711
  Serious: Yes (Hospitalization)
  Sender: FDA-Public Use
  Company Number: CA-TEVA-2018-CA-879104

PATIENT
  Age: 61 Year
  Sex: Female

DRUGS (1)
  1. LOSARTAN. [Suspect]
     Active Substance: LOSARTAN
     Indication: HYPERTENSION
     Route: 048

REACTIONS (6)
  - Hypertension [Unknown]
  - Product substitution issue [Unknown]
  - Rash [Unknown]
  - Drug ineffective [Unknown]
  - Hypersensitivity [Unknown]
  - Dyspnoea [Unknown]
